FAERS Safety Report 21810843 (Version 1)
Quarter: 2022Q4

REPORT INFORMATION
  Report Type: Spontaneous
  Country: US (occurrence: None)
  Receive Date: 20221230
  Receipt Date: 20221230
  Transmission Date: 20230113
  Serious: No
  Sender: FDA-Public Use
  Company Number: None

PATIENT
  Age: 7 Year
  Sex: Male
  Weight: 27.22 kg

DRUGS (1)
  1. METHYLPHENIDATE [Suspect]
     Active Substance: METHYLPHENIDATE
     Indication: Product used for unknown indication
     Dosage: OTHER FREQUENCY : EVERY 9 HOURS;?
     Route: 061
     Dates: start: 20221130, end: 20221215

REACTIONS (4)
  - Drug ineffective [None]
  - Treatment failure [None]
  - Insurance issue [None]
  - Educational problem [None]

NARRATIVE: CASE EVENT DATE: 20221130
